FAERS Safety Report 10176735 (Version 1)
Quarter: 2014Q2

REPORT INFORMATION
  Report Type: Spontaneous
  Country: US (occurrence: None)
  Receive Date: 20140515
  Receipt Date: 20140515
  Transmission Date: 20141212
  Serious: No
  Sender: FDA-Public Use
  Company Number: None

PATIENT
  Age: 58 Year
  Sex: Female

DRUGS (8)
  1. TARCEVA [Suspect]
     Indication: TONGUE NEOPLASM MALIGNANT STAGE UNSPECIFIED
     Dosage: 1 TABLET
     Route: 048
     Dates: start: 20140318, end: 20140514
  2. OMEPRAZOLE [Concomitant]
  3. LEVOTHYROXINE [Concomitant]
  4. AMLODIPINE [Concomitant]
  5. BACTRIM [Concomitant]
  6. HYDROXYZINE [Concomitant]
  7. FOLIC ACID [Concomitant]
  8. VITAMIN D [Concomitant]

REACTIONS (2)
  - Muscle spasms [None]
  - Abdominal discomfort [None]
